FAERS Safety Report 7017972-1 (Version None)
Quarter: 2010Q3

REPORT INFORMATION
  Report Type: 
  Country: None (occurrence: None)
  Receive Date: 20100927
  Receipt Date: 20100927
  Transmission Date: 20110219
  Serious: Yes (Hospitalization)
  Sender: FDA-Public Use
  Company Number: None

PATIENT
  Age: 41 Year
  Sex: Female
  Weight: 75.1 kg

DRUGS (1)
  1. ALEVE [Suspect]
     Dosage: 220MG ALEVE LIQUID GEL CAPULE ONE 047-ORAL
     Route: 048
     Dates: start: 20100908, end: 20100908

REACTIONS (1)
  - CHEST PAIN [None]
